FAERS Safety Report 5474287-0 (Version None)
Quarter: 2007Q4

REPORT INFORMATION
  Report Type: 
  Country: None (occurrence: None)
  Receive Date: 20071002
  Receipt Date: 20070713
  Transmission Date: 20080405
  Serious: No
  Sender: FDA-Public Use
  Company Number: US-ASTRAZENECA-2007UW17893

PATIENT
  Age: 82 Year
  Sex: Female
  Weight: 77.1 kg

DRUGS (3)
  1. ARIMIDEX [Suspect]
     Indication: BREAST CANCER
     Route: 048
     Dates: start: 20070401
  2. THYROID TAB [Concomitant]
  3. ANTI-HYPERTENSIVES [Concomitant]

REACTIONS (4)
  - ASTHENIA [None]
  - COUGH [None]
  - HOT FLUSH [None]
  - PAIN IN EXTREMITY [None]
